FAERS Safety Report 17100175 (Version 1)
Quarter: 2019Q4

REPORT INFORMATION
  Report Type: Report from Study
  Country: CA (occurrence: CA)
  Receive Date: 20191202
  Receipt Date: 20191202
  Transmission Date: 20200122
  Serious: Yes (Hospitalization)
  Sender: FDA-Public Use
  Company Number: CA-JNJFOC-20191127684

PATIENT
  Sex: Male

DRUGS (1)
  1. STELARA [Suspect]
     Active Substance: USTEKINUMAB
     Indication: CROHN^S DISEASE
     Route: 058
     Dates: start: 20190119

REACTIONS (4)
  - Sepsis [Not Recovered/Not Resolved]
  - Fungal infection [Unknown]
  - Gastrointestinal necrosis [Recovering/Resolving]
  - Intestinal perforation [Recovering/Resolving]
